FAERS Safety Report 11167487 (Version 2)
Quarter: 2015Q3

REPORT INFORMATION
  Report Type: Spontaneous
  Country: CH (occurrence: CH)
  Receive Date: 20150605
  Receipt Date: 20150724
  Transmission Date: 20151125
  Serious: Yes (Hospitalization)
  Sender: FDA-Public Use
  Company Number: CH-BAYER-2015-300282

PATIENT
  Sex: Female

DRUGS (1)
  1. JAYDESS [Suspect]
     Active Substance: LEVONORGESTREL
     Dosage: UNK
     Dates: start: 20150217, end: 20150529

REACTIONS (6)
  - Quality of life decreased [Recovering/Resolving]
  - Respiration abnormal [Recovering/Resolving]
  - Ectopic pregnancy with contraceptive device [Not Recovered/Not Resolved]
  - Internal haemorrhage [Recovering/Resolving]
  - Drug ineffective [None]
  - Adnexa uteri pain [Recovering/Resolving]
